FAERS Safety Report 25702059 (Version 1)
Quarter: 2025Q3

REPORT INFORMATION
  Report Type: Spontaneous
  Country: US (occurrence: US)
  Receive Date: 20250819
  Receipt Date: 20250819
  Transmission Date: 20251020
  Serious: Yes (Death, Hospitalization, Other)
  Sender: SANOFI AVENTIS
  Company Number: US-SA-2025SA224746

PATIENT
  Age: 87 Year
  Sex: Male

DRUGS (5)
  1. KEVZARA [Suspect]
     Active Substance: SARILUMAB
     Indication: Polymyalgia rheumatica
     Dosage: 200 MG, QOW
     Route: 058
     Dates: start: 20240514, end: 202412
  2. TRAMADOL [Concomitant]
     Active Substance: TRAMADOL
     Dosage: ONE TABLET BY MOUTH TWICE A DAY AS NEEDED
     Dates: start: 20241115
  3. ALLOPURINOL [Concomitant]
     Active Substance: ALLOPURINOL
     Dosage: 1 DF, QD
     Route: 048
  4. TRAZODONE [Concomitant]
     Active Substance: TRAZODONE HYDROCHLORIDE
     Dosage: TAKE ONE TABLET BY MOUTH ONE TIME DAILY
  5. VITAMIN C [Concomitant]
     Active Substance: ASCORBIC ACID

REACTIONS (15)
  - Death [Fatal]
  - Atrial fibrillation [Unknown]
  - Fall [Unknown]
  - Syncope [Unknown]
  - Arteriosclerosis coronary artery [Unknown]
  - Transient ischaemic attack [Unknown]
  - Rotator cuff syndrome [Unknown]
  - Bursitis [Unknown]
  - Blood testosterone decreased [Unknown]
  - Muscle fatigue [Unknown]
  - Hyperlipidaemia [Unknown]
  - Arthralgia [Unknown]
  - Joint swelling [Unknown]
  - Overweight [Unknown]
  - Essential hypertension [Unknown]

NARRATIVE: CASE EVENT DATE: 20240924
